FAERS Safety Report 6402617-1 (Version None)
Quarter: 2009Q4

REPORT INFORMATION
  Report Type: 
  Country: None (occurrence: None)
  Receive Date: 20091009
  Receipt Date: 20090929
  Transmission Date: 20100525
  Serious: Yes (Disabling)
  Sender: FDA-Public Use
  Company Number: GXKR2009FR10359

PATIENT
  Age: 51 Year
  Sex: Male
  Weight: 97 kg

DRUGS (14)
  1. OFLOXACIN SANDOZ         (OFLOXACIN) FILM-COATED [Suspect]
     Indication: ORCHITIS
     Dosage: 200 MG, BID, ORAL, 200 MG, BID, ORAL
     Route: 048
     Dates: start: 20090727, end: 20090806
  2. OFLOXACIN SANDOZ         (OFLOXACIN) FILM-COATED [Suspect]
     Indication: PROSTATITIS
     Dosage: 200 MG, BID, ORAL, 200 MG, BID, ORAL
     Route: 048
     Dates: start: 20090727, end: 20090806
  3. OFLOXACIN SANDOZ         (OFLOXACIN) FILM-COATED [Suspect]
     Indication: ORCHITIS
     Dosage: 200 MG, BID, ORAL, 200 MG, BID, ORAL
     Route: 048
     Dates: start: 20090824, end: 20090912
  4. OFLOXACIN SANDOZ         (OFLOXACIN) FILM-COATED [Suspect]
     Indication: PROSTATITIS
     Dosage: 200 MG, BID, ORAL, 200 MG, BID, ORAL
     Route: 048
     Dates: start: 20090824, end: 20090912
  5. PROSCAR [Concomitant]
  6. EFFERALGAN CODEINE  (CODEINE PHOSPHATE, PARACETAMOL) [Concomitant]
  7. LEVOTHYROXINE SODIUM [Concomitant]
  8. MAGNE B6 (MAGNESIUM LACTATE, PYRIDOXINE HYDROCHLORIDE) [Concomitant]
  9. HEXAQUINE (MELALEUCA VIRIDIFLORA OIL, NIAOULI OIL, QUININE BENZOATE, T [Concomitant]
  10. PHLOROGLUCINOL (PHLOROGLUCINOL) [Concomitant]
  11. TETRAZEPAM (TETRAZEPAM) [Concomitant]
  12. COLCHICINE (COLCHICINE) [Concomitant]
  13. ACETAMINOPHEN [Concomitant]
  14. TRAMADOL HCL [Concomitant]

REACTIONS (7)
  - ASTHENIA [None]
  - ERYTHEMA [None]
  - MOBILITY DECREASED [None]
  - MUSCULOSKELETAL PAIN [None]
  - MYALGIA [None]
  - ORCHITIS [None]
  - PELVIC PAIN [None]
